FAERS Safety Report 13923994 (Version 1)
Quarter: 2017Q3

REPORT INFORMATION
  Report Type: Spontaneous
  Country: US (occurrence: None)
  Receive Date: 20170830
  Receipt Date: 20170830
  Transmission Date: 20171127
  Serious: Yes (Hospitalization)
  Sender: FDA-Public Use
  Company Number: None

PATIENT
  Age: 75 Year
  Sex: Male
  Weight: 106.14 kg

DRUGS (12)
  1. ABRAXANE [Suspect]
     Active Substance: PACLITAXEL
     Dosage: 283 MG, DAY 1,8,15 IV, EVERY 28 DAY
     Route: 042
     Dates: start: 20170727, end: 20170810
  2. METOPROLOL. [Concomitant]
     Active Substance: METOPROLOL
  3. HYDROXYCHLOROQUINE [Suspect]
     Active Substance: HYDROXYCHLOROQUINE
     Indication: ADENOCARCINOMA PANCREAS
     Route: 048
     Dates: start: 20170725, end: 20170810
  4. MULTIVITAMIN [Concomitant]
     Active Substance: VITAMINS
  5. GEMZAR [Concomitant]
     Active Substance: GEMCITABINE HYDROCHLORIDE
  6. FAMOTIDINE. [Concomitant]
     Active Substance: FAMOTIDINE
  7. FLUOXETINE [Concomitant]
     Active Substance: FLUOXETINE HYDROCHLORIDE
  8. LOSARTAN. [Concomitant]
     Active Substance: LOSARTAN
  9. DECEXAMETHASONE [Concomitant]
  10. GRANISETRON [Concomitant]
     Active Substance: GRANISETRON
  11. FUROSEMIDE. [Concomitant]
     Active Substance: FUROSEMIDE
  12. XARELTO [Concomitant]
     Active Substance: RIVAROXABAN

REACTIONS (7)
  - Abdominal discomfort [None]
  - Nausea [None]
  - Cholangitis [None]
  - Vomiting [None]
  - Rash [None]
  - Abdominal pain [None]
  - Pyrexia [None]

NARRATIVE: CASE EVENT DATE: 20170813
